FAERS Safety Report 8159731-2 (Version None)
Quarter: 2012Q1

REPORT INFORMATION
  Report Type: 
  Country: None (occurrence: None)
  Receive Date: 20120223
  Receipt Date: 20120213
  Transmission Date: 20120608
  Serious: Yes (Other)
  Sender: FDA-Public Use
  Company Number: CA-ROCHE-GNE319289

PATIENT
  Sex: Female

DRUGS (3)
  1. XOLAIR [Suspect]
     Indication: ASTHMA
     Dosage: 300 MG, Q4W
     Route: 058
     Dates: start: 20070607
  2. XOLAIR [Suspect]
     Dosage: UNK
     Dates: start: 20110411
  3. ALVESCO [Concomitant]

REACTIONS (12)
  - BLOOD PRESSURE DECREASED [None]
  - CHILLS [None]
  - INFECTION [None]
  - PRODUCTIVE COUGH [None]
  - PULMONARY CONGESTION [None]
  - PAIN [None]
  - TOOTHACHE [None]
  - OROPHARYNGEAL PAIN [None]
  - ASTHMA [None]
  - HEPATIC CYST [None]
  - FATIGUE [None]
  - DYSPNOEA [None]
